FAERS Safety Report 17062375 (Version 1)
Quarter: 2019Q4

REPORT INFORMATION
  Report Type: Spontaneous
  Country: US (occurrence: US)
  Receive Date: 20191122
  Receipt Date: 20191122
  Transmission Date: 20200122
  Serious: Yes (Life-Threatening, Hospitalization, Other)
  Sender: FDA-Public Use
  Company Number: US-SCIEGEN PHARMACEUTICALS INC-2019SCILIT00357

PATIENT
  Age: 69 Year
  Sex: Male

DRUGS (3)
  1. FUROSEMIDE. [Interacting]
     Active Substance: FUROSEMIDE
  2. CLOPIDOGREL [Suspect]
     Active Substance: CLOPIDOGREL BISULFATE
  3. ASPIRIN. [Suspect]
     Active Substance: ASPIRIN

REACTIONS (2)
  - Pulmonary alveolar haemorrhage [Recovering/Resolving]
  - Parainfluenzae virus infection [Unknown]
